FAERS Safety Report 17284297 (Version 1)
Quarter: 2020Q1

REPORT INFORMATION
  Report Type: Spontaneous
  Country: FR (occurrence: FR)
  Receive Date: 20200117
  Receipt Date: 20200117
  Transmission Date: 20200409
  Serious: Yes (Other)
  Sender: FDA-Public Use
  Company Number: FR-009507513-2001FRA004361

PATIENT
  Sex: Female

DRUGS (1)
  1. IMPLANON [Suspect]
     Active Substance: ETONOGESTREL
     Dosage: 1 IMPLANT
     Route: 059

REACTIONS (6)
  - Pregnancy with implant contraceptive [Unknown]
  - Complication associated with device [Not Recovered/Not Resolved]
  - Arthralgia [Unknown]
  - Device dislocation [Not Recovered/Not Resolved]
  - Unintended pregnancy [Unknown]
  - Incorrect product administration duration [Unknown]

NARRATIVE: CASE EVENT DATE: 2005
